FAERS Safety Report 6371968-1 (Version None)
Quarter: 2009Q3

REPORT INFORMATION
  Report Type: 
  Country: None (occurrence: None)
  Receive Date: 20090917
  Receipt Date: 20090904
  Transmission Date: 20100115
  Serious: Yes (Other)
  Sender: FDA-Public Use
  Company Number: ADR17242009

PATIENT
  Age: 51 Year
  Sex: Male

DRUGS (1)
  1. CITALOPRAM HYDROBROMIDE [Suspect]
     Indication: DEPRESSION
     Dosage: 10 MG PER DAY ORAL USE
     Route: 048
     Dates: start: 20060825

REACTIONS (5)
  - ANAL HAEMORRHAGE [None]
  - ARTHRALGIA [None]
  - EPISTAXIS [None]
  - PHYSICAL ASSAULT [None]
  - SUICIDAL IDEATION [None]
